FAERS Safety Report 10908175 (Version 1)
Quarter: 2015Q1

REPORT INFORMATION
  Report Type: Spontaneous
  Country: US (occurrence: None)
  Receive Date: 20150309
  Receipt Date: 20150309
  Transmission Date: 20150721
  Serious: Yes (Death)
  Sender: FDA-Public Use
  Company Number: None

PATIENT
  Age: 88 Year
  Sex: Male

DRUGS (1)
  1. TIKOSYN [Suspect]
     Active Substance: DOFETILIDE
     Indication: ATRIAL FIBRILLATION
     Dosage: 250MCG, TWICE A DAY, ORALLY
     Route: 048
     Dates: start: 20120112, end: 20150218

REACTIONS (1)
  - Intracranial aneurysm [None]

NARRATIVE: CASE EVENT DATE: 20150218
